FAERS Safety Report 6697159-2 (Version None)
Quarter: 2010Q2

REPORT INFORMATION
  Report Type: 
  Country: None (occurrence: None)
  Receive Date: 20100426
  Receipt Date: 20100414
  Transmission Date: 20101027
  Serious: Yes (Other)
  Sender: FDA-Public Use
  Company Number: AU-PFIZER INC-2010047258

PATIENT
  Age: 49 Year
  Sex: Male

DRUGS (6)
  1. CHAMPIX [Suspect]
     Dosage: UNK
  2. EPILIM [Concomitant]
     Indication: BIPOLAR DISORDER
     Dosage: 50 MG, 5 TIMES DAILY
  3. LITHIUM [Concomitant]
     Indication: BIPOLAR DISORDER
     Dosage: 100 MG, 3X/DAY
  4. EFFEXOR [Concomitant]
     Indication: BIPOLAR DISORDER
     Dosage: UNK
  5. GASTRO-STOP [Concomitant]
     Dosage: UNK
  6. LAMICTAL [Concomitant]
     Dosage: 100 MG, 1X/DAY

REACTIONS (1)
  - TREMOR [None]
